FAERS Safety Report 4500808-8 (Version None)
Quarter: 2004Q4

REPORT INFORMATION
  Report Type: 
  Country: None (occurrence: None)
  Receive Date: 20041115
  Receipt Date: 20041004
  Transmission Date: 20050328
  Serious: Yes (Disabling, Other)
  Sender: FDA-Public Use
  Company Number: US-MERCK-0410USA00547

PATIENT
  Age: 65 Year
  Sex: Female

DRUGS (6)
  1. FOSAMAX [Suspect]
     Indication: OSTEOPOROSIS
     Route: 048
     Dates: start: 20040925, end: 20040925
  2. CITRICAL [Concomitant]
     Route: 065
  3. NIACIN [Concomitant]
     Route: 065
  4. ONE-A-DAY ESSENTIAL VITAMINS [Concomitant]
     Route: 065
  5. ATENOLOL [Concomitant]
     Route: 065
  6. DIGITALIS [Concomitant]
     Route: 065

REACTIONS (2)
  - NODULE ON EXTREMITY [None]
  - POLYARTHRITIS [None]
